FAERS Safety Report 21002508 (Version 2)
Quarter: 2022Q4

REPORT INFORMATION
  Report Type: Spontaneous
  Country: US (occurrence: US)
  Receive Date: 20220624
  Receipt Date: 20221031
  Transmission Date: 20230113
  Serious: Yes (Death, Other)
  Sender: FDA-Public Use
  Company Number: US-REGENERON PHARMACEUTICALS, INC.-2022-082572

PATIENT
  Sex: Male

DRUGS (1)
  1. EYLEA [Suspect]
     Active Substance: AFLIBERCEPT
     Indication: Retinal vein occlusion
     Dosage: EVERY 8-10 WEEKS IN RIGHT EYE
     Dates: start: 20190627, end: 20200413

REACTIONS (1)
  - Death [Fatal]

NARRATIVE: CASE EVENT DATE: 20210307
